FAERS Safety Report 14830972 (Version 3)
Quarter: 2020Q3

REPORT INFORMATION
  Report Type: Report from Study
  Country: PA (occurrence: PA)
  Receive Date: 20180430
  Receipt Date: 20200923
  Transmission Date: 20201102
  Serious: Yes (Other)
  Sender: FDA-Public Use
  Company Number: PHHY2016PA022975

PATIENT
  Age: 33 Year
  Sex: Male

DRUGS (7)
  1. CLONAZEPAM. [Concomitant]
     Active Substance: CLONAZEPAM
     Indication: PRODUCT USED FOR UNKNOWN INDICATION
     Dosage: 1 DF, QD
     Route: 065
  2. SANDOSTATIN LAR DEPOT [Suspect]
     Active Substance: OCTREOTIDE ACETATE
  3. GABAPENTINA [Concomitant]
     Active Substance: GABAPENTIN
     Indication: PRODUCT USED FOR UNKNOWN INDICATION
     Dosage: 2 DF, Q8H
     Route: 065
  4. SANDOSTATIN LAR DEPOT [Suspect]
     Active Substance: OCTREOTIDE ACETATE
  5. SANDOSTATIN LAR DEPOT [Suspect]
     Active Substance: OCTREOTIDE ACETATE
     Indication: ACROMEGALY
     Dosage: 20 MG, QMO
     Route: 065
     Dates: start: 201510, end: 202007
  6. OMEPRAZOLE. [Concomitant]
     Active Substance: OMEPRAZOLE
     Indication: PRODUCT USED FOR UNKNOWN INDICATION
     Dosage: 1 DF, QD
     Route: 065
  7. SIMVASTATINA [Concomitant]
     Active Substance: SIMVASTATIN
     Indication: PRODUCT USED FOR UNKNOWN INDICATION
     Dosage: 2 DF, QD
     Route: 065

REACTIONS (21)
  - Gait disturbance [Recovered/Resolved]
  - Pyrexia [Unknown]
  - Fatigue [Unknown]
  - Intervertebral disc disorder [Unknown]
  - Flatulence [Unknown]
  - Blood growth hormone increased [Unknown]
  - Myalgia [Unknown]
  - Joint swelling [Unknown]
  - Pain [Unknown]
  - Spinal pain [Unknown]
  - Arthralgia [Unknown]
  - Malaise [Unknown]
  - Abdominal discomfort [Unknown]
  - Headache [Unknown]
  - Alopecia [Unknown]
  - Spinal stenosis [Unknown]
  - Diarrhoea [Unknown]
  - Asthenia [Unknown]
  - Muscle spasms [Unknown]
  - Gastritis [Unknown]
  - Weight decreased [Unknown]
